FAERS Safety Report 20551734 (Version 1)
Quarter: 2022Q1

REPORT INFORMATION
  Report Type: Spontaneous
  Country: JP (occurrence: JP)
  Receive Date: 20220304
  Receipt Date: 20220304
  Transmission Date: 20220423
  Serious: Yes (Other)
  Sender: FDA-Public Use
  Company Number: JP-PFIZER INC-202200301022

PATIENT
  Sex: Male

DRUGS (1)
  1. HALCION [Suspect]
     Active Substance: TRIAZOLAM

REACTIONS (5)
  - Peripheral paralysis [Unknown]
  - Therapeutic product effect delayed [Unknown]
  - Therapeutic product effect prolonged [Unknown]
  - Dysstasia [Unknown]
  - Limb discomfort [Unknown]
